FAERS Safety Report 13371285 (Version 3)
Quarter: 2017Q2

REPORT INFORMATION
  Report Type: Spontaneous
  Country: US (occurrence: US)
  Receive Date: 20170324
  Receipt Date: 20170622
  Transmission Date: 20170830
  Serious: No
  Sender: FDA-Public Use
  Company Number: GXBR2017US001048

PATIENT
  Sex: Female

DRUGS (1)
  1. BIMATOPROST. [Suspect]
     Active Substance: BIMATOPROST
     Indication: EYELASH THICKENING
     Dosage: 1 DF, QHS
     Route: 061
     Dates: start: 20170103, end: 20170228

REACTIONS (3)
  - Eyelid irritation [Unknown]
  - Hypersensitivity [Unknown]
  - Eye swelling [Unknown]
